FAERS Safety Report 17497567 (Version 1)
Quarter: 2020Q1

REPORT INFORMATION
  Report Type: Spontaneous
  Country: US (occurrence: US)
  Receive Date: 20200304
  Receipt Date: 20200304
  Transmission Date: 20200409
  Serious: Yes (Hospitalization)
  Sender: FDA-Public Use
  Company Number: US-PARI RESPIRATORY EQUIPMENT, INC.-2020PAR00017

PATIENT
  Sex: Female

DRUGS (2)
  1. KITABIS PAK [Suspect]
     Active Substance: TOBRAMYCIN
     Dosage: UNK, 2X/DAY
  2. SYMDEKO [Suspect]
     Active Substance: IVACAFTOR\TEZACAFTOR
     Dosage: UNK, 2X/DAY
     Route: 048
     Dates: start: 20190213, end: 20200201

REACTIONS (3)
  - Pneumonia [Unknown]
  - Helicobacter infection [Unknown]
  - Off label use [Recovered/Resolved]
